FAERS Safety Report 7769391 (Version 3)
Quarter: 2018Q3

REPORT INFORMATION
  Report Type: Spontaneous
  Country: IN (occurrence: IN)
  Receive Date: 20110121
  Receipt Date: 20180820
  Transmission Date: 20181010
  Serious: Yes (Other)
  Sender: FDA-Public Use
  Company Number: IN-PFIZER INC-2011011510

PATIENT
  Age: 28 Year
  Sex: Male

DRUGS (4)
  1. ATGAM [Suspect]
     Active Substance: EQUINE THYMOCYTE IMMUNE GLOBULIN
     Indication: APLASTIC ANAEMIA
     Dosage: 40 MG/KG, DAILY (INFUSION OVER 6?8 HOURS X 4 DAYS WITH ORAL PREDNISOLONE)
     Route: 042
  2. FLUCONAZOLE. [Concomitant]
     Active Substance: FLUCONAZOLE
     Indication: PROPHYLAXIS
     Dosage: UNK
  3. PREDNISOLONE. [Concomitant]
     Active Substance: PREDNISOLONE
     Indication: SERUM SICKNESS
     Dosage: 1 MG/KG, DAILY
     Route: 048
  4. LEVOFLOXACIN. [Concomitant]
     Active Substance: LEVOFLOXACIN
     Indication: PROPHYLAXIS
     Dosage: UNK

REACTIONS (14)
  - Renal impairment [Recovered/Resolved]
  - Renal failure [Recovered/Resolved]
  - Hypersensitivity [Unknown]
  - Hypertension [Unknown]
  - Oliguria [Recovering/Resolving]
  - Pyrexia [Unknown]
  - Abdominal discomfort [Unknown]
  - Malaise [Unknown]
  - Abdominal distension [Unknown]
  - Renal disorder [Unknown]
  - Decreased appetite [Unknown]
  - Chills [Unknown]
  - Nausea [Unknown]
  - Blood creatinine increased [Recovered/Resolved]
